FAERS Safety Report 14661386 (Version 2)
Quarter: 2018Q2

REPORT INFORMATION
  Report Type: Spontaneous
  Country: JP (occurrence: JP)
  Receive Date: 20180320
  Receipt Date: 20180402
  Transmission Date: 20180711
  Serious: Yes (Other)
  Sender: FDA-Public Use
  Company Number: JP-BRISTOL-MYERS SQUIBB COMPANY-BMS-2018-023105

PATIENT
  Age: 74 Year
  Sex: Male

DRUGS (2)
  1. XYLOCAINE [Concomitant]
     Active Substance: LIDOCAINE HYDROCHLORIDE
     Indication: FIBROSIS
     Dosage: UNK
     Route: 065
  2. KENACORT-A [Suspect]
     Active Substance: TRIAMCINOLONE
     Indication: FIBROSIS
     Dosage: 10 MG, QWK
     Route: 023
     Dates: start: 20180216, end: 20180309

REACTIONS (12)
  - Myalgia [Unknown]
  - Pruritus [Recovered/Resolved]
  - Blood pressure increased [Unknown]
  - Off label use [Unknown]
  - Arthralgia [Recovered/Resolved]
  - Musculoskeletal stiffness [Unknown]
  - Finger deformity [Unknown]
  - Feeling cold [Unknown]
  - Pollakiuria [Unknown]
  - Hypothalamo-pituitary disorder [Unknown]
  - Hot flush [Unknown]
  - Eye disorder [Unknown]

NARRATIVE: CASE EVENT DATE: 20180305
